FAERS Safety Report 10213489 (Version 1)
Quarter: 2014Q2

REPORT INFORMATION
  Report Type: Spontaneous
  Country: US (occurrence: None)
  Receive Date: 20140530
  Receipt Date: 20140530
  Transmission Date: 20141212
  Serious: Yes (Hospitalization)
  Sender: FDA-Public Use
  Company Number: None

PATIENT
  Age: 56 Year
  Sex: Male
  Weight: 111.4 kg

DRUGS (1)
  1. HYDROXYCHLOROQUINE [Suspect]
     Dosage: 200 MG, EVERY DAY, PO
     Route: 048
     Dates: start: 20130916, end: 20130925

REACTIONS (1)
  - Pancytopenia [None]
